FAERS Safety Report 10302232 (Version 6)
Quarter: 2014Q4

REPORT INFORMATION
  Report Type: Spontaneous
  Country: US (occurrence: US)
  Receive Date: 20140714
  Receipt Date: 20141209
  Transmission Date: 20150528
  Serious: Yes (Death, Hospitalization, Other)
  Sender: FDA-Public Use
  Company Number: US-009507513-1407USA005747

PATIENT
  Sex: Male
  Weight: 88.44 kg

DRUGS (4)
  1. VICTOZA [Suspect]
     Active Substance: LIRAGLUTIDE
     Dosage: 1.8 MG, QD
     Dates: start: 20101207, end: 20120730
  2. JANUMET [Suspect]
     Active Substance: METFORMIN HYDROCHLORIDE\SITAGLIPTIN PHOSPHATE
     Indication: TYPE 2 DIABETES MELLITUS
     Dosage: 50/1000MG DAILY
     Route: 048
     Dates: start: 20070821, end: 20071028
  3. VICTOZA [Suspect]
     Active Substance: LIRAGLUTIDE
     Indication: TYPE 2 DIABETES MELLITUS
     Dosage: 1.2 MG, QD
     Dates: start: 20101021, end: 20101207
  4. JANUMET [Suspect]
     Active Substance: METFORMIN HYDROCHLORIDE\SITAGLIPTIN PHOSPHATE
     Dosage: 50/1000MG BID
     Route: 048
     Dates: start: 20071028, end: 20120809

REACTIONS (15)
  - Depression [Unknown]
  - Erectile dysfunction [Unknown]
  - Cholelithiasis [Unknown]
  - Metastases to liver [Unknown]
  - Pancreaticoduodenectomy [Unknown]
  - Coronary artery disease [Unknown]
  - Osteoarthritis [Unknown]
  - Gastrooesophageal reflux disease [Unknown]
  - Pancreatic carcinoma metastatic [Fatal]
  - Adenotonsillectomy [Unknown]
  - Pancreatitis [Unknown]
  - Sleep apnoea syndrome [Unknown]
  - Cholecystitis [Unknown]
  - Anxiety [Unknown]
  - Stent placement [Unknown]

NARRATIVE: CASE EVENT DATE: 20120515
